FAERS Safety Report 4767296-8 (Version None)
Quarter: 2005Q3

REPORT INFORMATION
  Report Type: 
  Country: None (occurrence: None)
  Receive Date: 20050913
  Receipt Date: 20041203
  Transmission Date: 20060218
  Serious: Yes (Other)
  Sender: FDA-Public Use
  Company Number: GB-GLAXOSMITHKLINE-B0359588A

PATIENT
  Sex: Female

DRUGS (4)
  1. SEROXAT [Suspect]
     Indication: DEPRESSION
     Route: 065
     Dates: start: 19961101, end: 20021001
  2. NAPROSYN [Suspect]
     Route: 065
  3. UNSPECIFIED DRUG [Suspect]
     Route: 065
  4. ALCOHOL [Suspect]
     Route: 065

REACTIONS (4)
  - COMPLETED SUICIDE [None]
  - CRYING [None]
  - ILL-DEFINED DISORDER [None]
  - OVERDOSE [None]
